FAERS Safety Report 19974517 (Version 1)
Quarter: 2021Q4

REPORT INFORMATION
  Report Type: Spontaneous
  Country: US (occurrence: US)
  Receive Date: 20211020
  Receipt Date: 20211020
  Transmission Date: 20220303
  Serious: Yes (Death)
  Sender: FDA-Public Use
  Company Number: US-BLUEPRINT MEDICINES CORPORATION-SP-US-2021-001879

PATIENT
  Age: 72 Year
  Sex: Male

DRUGS (2)
  1. AYVAKIT [Suspect]
     Active Substance: AVAPRITINIB
     Indication: Systemic mastocytosis
     Dosage: TAKE WITH 25 MG TABLET FOR A TOTAL DAILY DOSE OF 75 MG
     Route: 048
     Dates: start: 20191019
  2. AYVAKIT [Suspect]
     Active Substance: AVAPRITINIB
     Dosage: TAKE WITH THE 25 MG TABLET FOR A TOTAL DAILY DOSE OF 75 MG
     Route: 048
     Dates: start: 20191019, end: 20210927

REACTIONS (3)
  - Death [Fatal]
  - Platelet count decreased [Unknown]
  - Off label use [Unknown]

NARRATIVE: CASE EVENT DATE: 20210811
